FAERS Safety Report 4679813-7 (Version None)
Quarter: 2005Q2

REPORT INFORMATION
  Report Type: 
  Country: None (occurrence: None)
  Receive Date: 20050531
  Receipt Date: 20050519
  Transmission Date: 20051028
  Serious: No
  Sender: FDA-Public Use
  Company Number: B0381635A

PATIENT
  Age: 46 Year
  Sex: Female
  Weight: 67.8581 kg

DRUGS (1)
  1. ZYBAN [Suspect]
     Indication: EX-SMOKER
     Dosage: 150 MG/TWICE PER DAY/ORAL
     Route: 048
     Dates: start: 20050504, end: 20050518

REACTIONS (1)
  - ANAPHYLACTIC REACTION [None]
